FAERS Safety Report 19868672 (Version 1)
Quarter: 2021Q3

REPORT INFORMATION
  Report Type: Spontaneous
  Country: DE (occurrence: DE)
  Receive Date: 20210922
  Receipt Date: 20210922
  Transmission Date: 20211014
  Serious: Yes (Congenital Anomaly)
  Sender: FDA-Public Use
  Company Number: DE-TEVA-2021-DE-1953194

PATIENT
  Age: 3 Week
  Sex: Female

DRUGS (8)
  1. PREGABALIN. [Suspect]
     Active Substance: PREGABALIN
     Indication: PAIN
     Dosage: 50 MILLIGRAM DAILY; ADDITIONAL INFO :  3.4. ? 10.1. GESTATIONAL WEEK
     Route: 064
  2. PANTOPRAZOL [Concomitant]
     Active Substance: PANTOPRAZOLE SODIUM
     Indication: GASTRITIS PROPHYLAXIS
     Dosage: 20 [MG / D (IF REQUIRED)] / IF REQUIRED , UNIT DOSE : 20 MG , ADDITIONAL INFO :  3.4. ? 9.3. GESTATI
     Route: 064
  3. ZOSTEX [Concomitant]
     Active Substance: BRIVUDINE
     Indication: HERPES ZOSTER
     Dosage: 125 MILLIGRAM DAILY; ADDITIONAL INFO :  4. ? 7. GESTATIONAL WEEK
     Route: 064
  4. CALCIUM [Concomitant]
     Active Substance: CALCIUM
     Indication: PROPHYLAXIS
     Dosage: 500 MILLIGRAM DAILY; ADDITIONAL INFO : 3.4. ? 9.3. GESTATIONAL WEEK
     Route: 064
     Dates: end: 20200225
  5. VITAMIN D [Concomitant]
     Active Substance: VITAMIN D NOS
     Indication: VITAMIN D DEFICIENCY
     Dosage: 400 IU (INTERNATIONAL UNIT) DAILY; ADDITIONAL INFO : 3.4. ? 9.3. GESTATIONAL WEEK
     Route: 064
  6. MESALAZINE [Suspect]
     Active Substance: MESALAMINE
     Indication: COLITIS ULCERATIVE
     Dosage: ADDITIONAL INFO :  0. ? 40.1. GESTATIONAL WEEK
     Route: 064
     Dates: start: 20191221, end: 20200927
  7. VITAMIN B COMPLEX NOS [Concomitant]
     Active Substance: CYANOCOBALAMIN\PYRIDOXINE HYDROCHLORIDE\RIBOFLAVIN\SODIUM PANTOTHENATE\THIAMINE HYDROCHLORIDE\VITAMIN B COMPLEX
     Indication: VITAMIN B COMPLEX DEFICIENCY
     Dosage: ADDITIONAL INFO : 3.4. ? 9.3. GESTATIONAL WEEK
     Route: 064
  8. PREDNISOLON [Concomitant]
     Active Substance: PREDNISOLONE
     Indication: COLITIS ULCERATIVE
     Dosage: 5 MILLIGRAM DAILY; ADDITIONAL INFO : 0. ? 40.1. GESTATIONAL WEEK
     Route: 064
     Dates: start: 20191221, end: 20200927

REACTIONS (2)
  - Foetal exposure during pregnancy [Unknown]
  - Atrial septal defect [Unknown]

NARRATIVE: CASE EVENT DATE: 20191221
